FAERS Safety Report 17189525 (Version 1)
Quarter: 2019Q4

REPORT INFORMATION
  Report Type: Spontaneous
  Country: FR (occurrence: FR)
  Receive Date: 20191223
  Receipt Date: 20191223
  Transmission Date: 20200122
  Serious: Yes (Other)
  Sender: FDA-Public Use
  Company Number: FR-ROCHE-2503594

PATIENT
  Age: 29 Year
  Sex: Male

DRUGS (1)
  1. XOLAIR [Suspect]
     Active Substance: OMALIZUMAB
     Indication: URTICARIA
     Dosage: INCONUE
     Route: 058
     Dates: start: 201904, end: 201908

REACTIONS (2)
  - Conduction disorder [Not Recovered/Not Resolved]
  - Atrioventricular block [Not Recovered/Not Resolved]

NARRATIVE: CASE EVENT DATE: 201909
